FAERS Safety Report 4845618-7 (Version None)
Quarter: 2005Q4

REPORT INFORMATION
  Report Type: 
  Country: None (occurrence: None)
  Receive Date: 20051201
  Receipt Date: 20051114
  Transmission Date: 20060501
  Serious: Yes (Hospitalization)
  Sender: FDA-Public Use
  Company Number: 207026

PATIENT
  Age: 40 Year
  Sex: Female

DRUGS (2)
  1. AVONEX [Suspect]
     Indication: MULTIPLE SCLEROSIS
     Dosage: 30 UG; QW; IM
     Route: 030
     Dates: start: 19981101, end: 20030101
  2. AVONEX [Suspect]
     Indication: MULTIPLE SCLEROSIS
     Dosage: 30 UG; QW; IM
     Route: 030
     Dates: start: 20030101

REACTIONS (10)
  - BLINDNESS [None]
  - CYSTITIS [None]
  - DEHYDRATION [None]
  - FATIGUE [None]
  - IMMOBILE [None]
  - LOSS OF CONSCIOUSNESS [None]
  - MONOPLEGIA [None]
  - ROAD TRAFFIC ACCIDENT [None]
  - VISUAL DISTURBANCE [None]
  - VITAMIN B12 DECREASED [None]
